FAERS Safety Report 15777884 (Version 1)
Quarter: 2018Q4

REPORT INFORMATION
  Report Type: Spontaneous
  Country: US (occurrence: US)
  Receive Date: 20181231
  Receipt Date: 20181231
  Transmission Date: 20190205
  Serious: Yes (Disabling)
  Sender: FDA-Public Use
  Company Number: None

PATIENT
  Age: 70 Year
  Sex: Female
  Weight: 74.25 kg

DRUGS (1)
  1. .75 MCG LEVOTHYROXINE [Suspect]
     Active Substance: LEVOTHYROXINE
     Indication: HYPOTHYROIDISM
     Dosage: ?          QUANTITY:1 TABLET(S);?
     Route: 048

REACTIONS (8)
  - Depression [None]
  - Weight increased [None]
  - Fatigue [None]
  - Arthralgia [None]
  - Visual impairment [None]
  - Confusional state [None]
  - Feeling abnormal [None]
  - Alopecia [None]

NARRATIVE: CASE EVENT DATE: 20181105
